FAERS Safety Report 18164513 (Version 1)
Quarter: 2020Q3

REPORT INFORMATION
  Report Type: Spontaneous
  Country: DE (occurrence: DE)
  Receive Date: 20200818
  Receipt Date: 20200818
  Transmission Date: 20201103
  Serious: Yes (Hospitalization)
  Sender: FDA-Public Use
  Company Number: DE-PFIZER INC-2020312656

PATIENT
  Age: 69 Year
  Sex: Female
  Weight: 63 kg

DRUGS (3)
  1. CANDESARTAN. [Concomitant]
     Active Substance: CANDESARTAN
     Dosage: 8 MG, 1X/DAY, 1?0?0?0
     Route: 048
  2. AZULFIDINE [Suspect]
     Active Substance: SULFASALAZINE
     Dosage: 4 MG, 1X/DAY,  1?0?0?0
     Route: 048
  3. OMEPRAZOL [Concomitant]
     Active Substance: OMEPRAZOLE
     Dosage: 40 MG, 2X/DAY, EVERY 12 HOURS, 1?0?1?0
     Route: 048

REACTIONS (3)
  - Vomiting [Unknown]
  - Paraesthesia [Unknown]
  - Diarrhoea [Unknown]
